FAERS Safety Report 24020237 (Version 1)
Quarter: 2024Q2

REPORT INFORMATION
  Report Type: Spontaneous
  Country: US (occurrence: US)
  Receive Date: 20240627
  Receipt Date: 20240627
  Transmission Date: 20240716
  Serious: Yes (Other)
  Sender: FDA-Public Use
  Company Number: US-BRISTOL-MYERS SQUIBB COMPANY-2024-102960

PATIENT
  Age: 74 Year
  Sex: Male
  Weight: 107.05 kg

DRUGS (22)
  1. POMALYST [Suspect]
     Active Substance: POMALIDOMIDE
     Indication: Plasma cell myeloma
     Route: 048
  2. ASPIRIN [Concomitant]
     Active Substance: ASPIRIN
  3. ACYCLOVIR [Concomitant]
     Active Substance: ACYCLOVIR
  4. LORATADINE [Concomitant]
     Active Substance: LORATADINE
  5. ALLOPURINOL [Concomitant]
     Active Substance: ALLOPURINOL
  6. BACLOFEN [Concomitant]
     Active Substance: BACLOFEN
  7. CALTRATE [Concomitant]
     Active Substance: CALCIUM CARBONATE
  8. CARVEDILOL [Concomitant]
     Active Substance: CARVEDILOL
  9. DEXAMETHASONE [Concomitant]
     Active Substance: DEXAMETHASONE
  10. FARXIGA [Concomitant]
     Active Substance: DAPAGLIFLOZIN PROPANEDIOL
  11. HYDROCHLOROTHIAZIDE [Concomitant]
     Active Substance: HYDROCHLOROTHIAZIDE
  12. LIVALO [Concomitant]
     Active Substance: PITAVASTATIN CALCIUM
  13. OMEPRAZOLE [Concomitant]
     Active Substance: DONEPEZIL HYDROCHLORIDE\OMEPRAZOLE\OMEPRAZOLE MAGNESIUM
  14. PROCHLORPERAZINE [Concomitant]
     Active Substance: PROCHLORPERAZINE
  15. PROVENTIL [Concomitant]
     Active Substance: ALBUTEROL
  16. TOUJEO [Concomitant]
     Active Substance: INSULIN GLARGINE
  17. TRULICITY [Concomitant]
     Active Substance: DULAGLUTIDE
  18. TYLENOL [Concomitant]
     Active Substance: ACETAMINOPHEN
  19. VELCADE [Concomitant]
     Active Substance: BORTEZOMIB
  20. ASCORBIC ACID [Concomitant]
     Active Substance: ASCORBIC ACID
  21. VITAMIN D3 [Concomitant]
     Active Substance: CHOLECALCIFEROL
  22. BACTRIM [Concomitant]
     Active Substance: SULFAMETHOXAZOLE\TRIMETHOPRIM

REACTIONS (3)
  - Drug intolerance [Unknown]
  - Neuropathy peripheral [Unknown]
  - Off label use [Unknown]
